FAERS Safety Report 8184597 (Version 5)
Quarter: 2012Q4

REPORT INFORMATION
  Report Type: 
  Country: US (occurrence: US)
  Receive Date: 20111018
  Receipt Date: 20120906
  Transmission Date: 20130627
  Serious: Yes (Death, Hospitalization)
  Sender: FDA-Public Use
  Company Number: US-BIOGENIDEC-2011BI038774

PATIENT
  Age: 52 Year
  Sex: Male
  Weight: 112 kg

DRUGS (27)
  1. TYSABRI [Suspect]
     Indication: MULTIPLE SCLEROSIS
     Route: 042
     Dates: start: 20070327, end: 20100903
  2. TYSABRI [Suspect]
     Indication: MULTIPLE SCLEROSIS
     Route: 042
     Dates: start: 20110111, end: 20110902
  3. TYSABRI [Suspect]
     Indication: MULTIPLE SCLEROSIS
     Route: 042
     Dates: start: 20120227
  4. AVONEX [Concomitant]
     Indication: MULTIPLE SCLEROSIS
     Route: 030
  5. DILAUDID [Concomitant]
     Route: 042
  6. PRAVACHOL [Concomitant]
     Route: 048
  7. TAMSULOSIN [Concomitant]
     Route: 048
  8. PROVIGIL [Concomitant]
     Route: 048
  9. TIZANIDINE HCL [Concomitant]
     Route: 048
  10. MULTIVITAMIN [Concomitant]
  11. VITAMIN B COMPLEX [Concomitant]
  12. FUROSEMIDE [Concomitant]
     Route: 048
  13. OMEPRAZOLE [Concomitant]
     Route: 048
  14. CHOLECALCIFEROL [Concomitant]
     Route: 048
  15. CHOLECALCIFEROL [Concomitant]
     Route: 048
  16. COENZYME Q10 [Concomitant]
     Route: 048
  17. CALCIUM [Concomitant]
     Route: 048
  18. METOPROLOL TARTRATE [Concomitant]
     Route: 048
  19. LORAZEPAM [Concomitant]
     Indication: ANXIETY
  20. VESICARE [Concomitant]
     Route: 048
  21. HYDROCHLOROTHIAZIDE [Concomitant]
     Route: 048
  22. WELLBUTRIN [Concomitant]
     Route: 048
  23. TEMAZEPAM [Concomitant]
     Indication: SLEEP DISORDER
     Route: 048
  24. ASPIRIN [Concomitant]
     Route: 048
  25. CETIRIZINE [Concomitant]
     Route: 048
  26. VIAGRA [Concomitant]
     Route: 048
  27. POTASSIUM CHLORIDE [Concomitant]
     Route: 048

REACTIONS (11)
  - Arteriosclerosis coronary artery [Fatal]
  - Clostridium difficile infection [Recovered/Resolved]
  - Hypertensive heart disease [Unknown]
  - Hyperlipidaemia [Unknown]
  - Balance disorder [Unknown]
  - Leukocytosis [Unknown]
  - Atrial fibrillation [Unknown]
  - Hyperglycaemia [Unknown]
  - Lymphoedema [Unknown]
  - Multiple sclerosis relapse [Recovered/Resolved]
  - Urinary tract infection [Recovered/Resolved]
